FAERS Safety Report 5743541-7 (Version None)
Quarter: 2008Q2

REPORT INFORMATION
  Report Type: 
  Country: None (occurrence: None)
  Receive Date: 20080519
  Receipt Date: 20080519
  Transmission Date: 20081010
  Serious: No
  Sender: FDA-Public Use
  Company Number: None

PATIENT
  Age: 63 Year
  Sex: Female
  Weight: 68.0396 kg

DRUGS (1)
  1. LEVAQUIN [Suspect]
     Indication: BRONCHITIS CHRONIC
     Dosage: 750MG QD PO
     Route: 048
     Dates: start: 20080331, end: 20080514

REACTIONS (2)
  - ARTHRALGIA [None]
  - RESPIRATORY DISORDER [None]
